FAERS Safety Report 12779289 (Version 3)
Quarter: 2019Q2

REPORT INFORMATION
  Report Type: Spontaneous
  Country: DE (occurrence: DE)
  Receive Date: 20160926
  Receipt Date: 20190430
  Transmission Date: 20190711
  Serious: Yes (Hospitalization, Other)
  Sender: FDA-Public Use
  Company Number: DE-ROCHE-1834725

PATIENT
  Sex: Female

DRUGS (11)
  1. PEGFILGRASTIM [Suspect]
     Active Substance: PEGFILGRASTIM
     Indication: B-CELL LYMPHOMA
     Dosage: EVERY 2 WEEKS ON DAY 4
     Route: 058
     Dates: end: 20160827
  2. BISOPROLOL [Concomitant]
     Active Substance: BISOPROLOL
  3. CYCLOPHOSPHAMIDE. [Suspect]
     Active Substance: CYCLOPHOSPHAMIDE
     Indication: B-CELL LYMPHOMA
     Dosage: MOST RECENT DOSE ON 25/AUG/2016 PRIOR TO SAE
     Route: 042
     Dates: end: 20160825
  4. ACETYLSALICYLIC ACID [Concomitant]
     Active Substance: ASPIRIN
  5. VINCRISTINE [Suspect]
     Active Substance: VINCRISTINE
     Indication: B-CELL LYMPHOMA
     Dosage: MOST RECENT DOSE ON 25/AUG/2016 PRIOR TO SAE
     Route: 042
     Dates: end: 20160615
  6. PREDNISOLONE. [Suspect]
     Active Substance: PREDNISOLONE
     Indication: B-CELL LYMPHOMA
     Dosage: DAY 1-5, MOST RECENT DOSE ON 25/AUG/2016 PRIOR TO SAE
     Route: 048
     Dates: end: 20160828
  7. SIMVASTATIN. [Concomitant]
     Active Substance: SIMVASTATIN
  8. METFORMIN [Concomitant]
     Active Substance: METFORMIN HYDROCHLORIDE
     Route: 065
  9. RITUXIMAB. [Suspect]
     Active Substance: RITUXIMAB
     Indication: B-CELL LYMPHOMA
     Dosage: PRIOR SAE; 07/SEP/2016
     Route: 041
  10. DOXORUBICINE [DOXORUBICIN] [Suspect]
     Active Substance: DOXORUBICIN
     Indication: B-CELL LYMPHOMA
     Dosage: MOST RECENT DOSE ON 25/AUG/2016 PRIOR TO SAE
     Route: 042
     Dates: end: 20160825
  11. INSULIN ASPART [Concomitant]
     Active Substance: INSULIN ASPART

REACTIONS (6)
  - Pulmonary embolism [Recovered/Resolved]
  - Varicose vein [Unknown]
  - Thrombophlebitis [Unknown]
  - Left ventricular hypertrophy [Unknown]
  - Neutropenia [Unknown]
  - Venous thrombosis [Unknown]

NARRATIVE: CASE EVENT DATE: 2016
